FAERS Safety Report 7553812-X (Version None)
Quarter: 2011Q2

REPORT INFORMATION
  Report Type: 
  Country: None (occurrence: None)
  Receive Date: 20110617
  Receipt Date: 20110606
  Transmission Date: 20111010
  Serious: Yes (Hospitalization)
  Sender: FDA-Public Use
  Company Number: MY-SANOFI-AVENTIS-2011SA035046

PATIENT
  Age: 75 Year
  Sex: Male

DRUGS (7)
  1. CARVEDILOL [Concomitant]
     Indication: MYOCARDIAL INFARCTION
     Route: 048
  2. INSULIN [Concomitant]
     Indication: DIABETES MELLITUS
     Route: 058
  3. DOXAZOSIN MESYLATE [Concomitant]
  4. WARFARIN SODIUM [Concomitant]
     Indication: ATRIAL FIBRILLATION
     Route: 048
  5. MULTAQ [Suspect]
     Route: 048
     Dates: start: 20110531, end: 20110604
  6. ENALAPRIL MALEATE [Concomitant]
     Indication: MYOCARDIAL INFARCTION
     Route: 048
  7. AMLODIPINE [Concomitant]
     Indication: HYPERTENSION
     Route: 048

REACTIONS (3)
  - DIZZINESS [None]
  - ORTHOPNOEA [None]
  - DYSPNOEA [None]
